FAERS Safety Report 13656802 (Version 1)
Quarter: 2017Q2

REPORT INFORMATION
  Report Type: Spontaneous
  Country: DK (occurrence: DK)
  Receive Date: 20170615
  Receipt Date: 20170615
  Transmission Date: 20170830
  Serious: No
  Sender: FDA-Public Use
  Company Number: DK-ALLERGAN-1704260US

PATIENT
  Age: 60 Year
  Sex: Male

DRUGS (3)
  1. KENTERA 3.9MG/24 HOURS TRANSDERMAL PATCH [Suspect]
     Active Substance: OXYBUTYNIN
     Dosage: 1 DF, QD
     Route: 062
  2. KENTERA 3.9MG/24 HOURS TRANSDERMAL PATCH [Suspect]
     Active Substance: OXYBUTYNIN
     Indication: INCONTINENCE
     Dosage: 1 DF, Q WEEK
     Route: 062
  3. KENTERA 3.9MG/24 HOURS TRANSDERMAL PATCH [Suspect]
     Active Substance: OXYBUTYNIN
     Dosage: 2 DF, QD
     Route: 062

REACTIONS (3)
  - Drug ineffective [Unknown]
  - Inappropriate schedule of drug administration [Unknown]
  - Product physical issue [Unknown]
